FAERS Safety Report 9966653 (Version 2)
Quarter: 2014Q1

REPORT INFORMATION
  Report Type: Report from Study
  Country: US (occurrence: US)
  Receive Date: 20140305
  Receipt Date: 20140305
  Transmission Date: 20141002
  Serious: No
  Sender: FDA-Public Use
  Company Number: US-ABBVIE-13P-163-1086799-00

PATIENT
  Age: 66 Year
  Sex: Male

DRUGS (14)
  1. HUMIRA [Suspect]
     Indication: COLITIS ULCERATIVE
     Dosage: INITIAL DOSE
     Dates: start: 20130502, end: 20130502
  2. HUMIRA [Suspect]
     Dates: start: 20130516
  3. HUMIRA [Suspect]
  4. LEVOTHYROXINE [Concomitant]
     Indication: THYROID DISORDER
  5. POTASSIUM CHLORIDE [Concomitant]
     Indication: PRODUCT USED FOR UNKNOWN INDICATION
  6. LISINOPRIL [Concomitant]
     Indication: HYPERTENSION
  7. ONGLYZA [Concomitant]
     Indication: DIABETES MELLITUS
  8. AMLODIPINE [Concomitant]
     Indication: HYPERTENSION
  9. LANTUS [Concomitant]
     Indication: DIABETES MELLITUS
  10. ASACOL [Concomitant]
     Indication: COLITIS ULCERATIVE
     Dosage: 2 TABS
  11. AZATHIOPRINE [Concomitant]
     Indication: PRODUCT USED FOR UNKNOWN INDICATION
     Dosage: 1.5 TABS
  12. BUDESONIDE [Concomitant]
     Indication: COLITIS ULCERATIVE
  13. RAPAFLO [Concomitant]
     Indication: PRODUCT USED FOR UNKNOWN INDICATION
  14. ENTOCORT EC [Concomitant]
     Indication: PRODUCT USED FOR UNKNOWN INDICATION

REACTIONS (4)
  - Weight decreased [Not Recovered/Not Resolved]
  - Diarrhoea [Not Recovered/Not Resolved]
  - Haematochezia [Not Recovered/Not Resolved]
  - Drug ineffective [Unknown]
